FAERS Safety Report 19185002 (Version 1)
Quarter: 2021Q2

REPORT INFORMATION
  Report Type: Spontaneous
  Country: US (occurrence: US)
  Receive Date: 20210426
  Receipt Date: 20210426
  Transmission Date: 20210717
  Serious: Yes (Other)
  Sender: FDA-Public Use
  Company Number: None

PATIENT
  Age: 66 Year
  Sex: Male

DRUGS (1)
  1. AUBAGIO [Suspect]
     Active Substance: TERIFLUNOMIDE
     Indication: MULTIPLE SCLEROSIS
     Route: 048
     Dates: start: 202104

REACTIONS (5)
  - Somnambulism [None]
  - Sleep disorder [None]
  - Pain [None]
  - Muscle disorder [None]
  - Nervous system disorder [None]

NARRATIVE: CASE EVENT DATE: 20210426
